FAERS Safety Report 7699371-2 (Version None)
Quarter: 2011Q3

REPORT INFORMATION
  Report Type: 
  Country: None (occurrence: None)
  Receive Date: 20110819
  Receipt Date: 20110809
  Transmission Date: 20111222
  Serious: Yes (Hospitalization, Other)
  Sender: FDA-Public Use
  Company Number: US-BAYER-2011-019296

PATIENT
  Age: 42 Year
  Sex: Female
  Weight: 70 kg

DRUGS (3)
  1. YAZ [Suspect]
     Indication: PREMENSTRUAL SYNDROME
  2. YAZ [Suspect]
     Indication: ACNE
     Dosage: UNK
     Route: 048
     Dates: start: 20070201, end: 20070401
  3. ZOLOFT [Concomitant]
     Dosage: 50 MG, UNK

REACTIONS (9)
  - EMOTIONAL DISTRESS [None]
  - FEELING ABNORMAL [None]
  - ASTHENIA [None]
  - INJURY [None]
  - ANXIETY [None]
  - PAIN [None]
  - PULMONARY EMBOLISM [None]
  - COUGH [None]
  - FATIGUE [None]
